FAERS Safety Report 9333437 (Version 2)
Quarter: 2013Q4

REPORT INFORMATION
  Report Type: Spontaneous
  Country: US (occurrence: US)
  Receive Date: 20130606
  Receipt Date: 20131030
  Transmission Date: 20140711
  Serious: Yes (Hospitalization)
  Sender: FDA-Public Use
  Company Number: US-B.I. PHARMACEUTICALS,INC./RIDGEFIELD-2013-BI-15770BP

PATIENT
  Age: 60 Year
  Sex: Male
  Weight: 102.06 kg

DRUGS (19)
  1. PRADAXA [Suspect]
     Indication: ATRIAL FIBRILLATION
     Dosage: 300 MG
     Route: 048
     Dates: start: 20111118, end: 20120125
  2. PRADAXA [Suspect]
     Indication: CEREBROVASCULAR ACCIDENT PROPHYLAXIS
     Dosage: 150 MG
     Route: 048
     Dates: start: 20120125, end: 20120127
  3. METFORMIN [Concomitant]
     Dosage: 200 MG
     Route: 048
  4. LISINOPRIL [Concomitant]
     Indication: HYPERTENSION
     Dosage: 5 MG
     Route: 048
     Dates: start: 2002
  5. CIALIS [Concomitant]
     Route: 048
  6. PRAVASTATIN [Concomitant]
     Dosage: 40 MG
     Route: 048
  7. RANEXA [Concomitant]
     Dosage: 2000 MG
     Route: 048
  8. SPIRONOLACTONE [Concomitant]
     Route: 048
  9. METOPROLOL TARTRATE [Concomitant]
     Dosage: 50 MG
     Route: 048
     Dates: start: 2002
  10. ASA [Concomitant]
     Dosage: 162 MG
     Route: 048
  11. FISH OIL/OMEGA 3 [Concomitant]
     Dosage: 1000 MG
     Route: 048
  12. MULTIVITAMIN [Concomitant]
     Route: 048
  13. CINNAMON [Concomitant]
     Route: 048
  14. NITROGLYCERIN [Concomitant]
     Route: 060
  15. VENTOLIN [Concomitant]
     Route: 055
  16. LYCOPENE [Concomitant]
     Dosage: 10 MG
     Route: 048
  17. LASIX [Concomitant]
     Dosage: 40 MG
     Route: 048
  18. AMIODARONE [Concomitant]
     Dosage: 200 MG
     Route: 048
  19. GLIMEPIRIDE [Concomitant]
     Dosage: 2 MG
     Route: 048
     Dates: start: 2011

REACTIONS (4)
  - Gastrointestinal haemorrhage [Unknown]
  - Pericardial haemorrhage [Recovered/Resolved]
  - Haemorrhagic anaemia [Unknown]
  - Coagulopathy [Not Recovered/Not Resolved]
